FAERS Safety Report 6157052-0 (Version None)
Quarter: 2009Q2

REPORT INFORMATION
  Report Type: 
  Country: None (occurrence: None)
  Receive Date: 20090413
  Receipt Date: 20090402
  Transmission Date: 20091009
  Serious: Yes (Death)
  Sender: FDA-Public Use
  Company Number: GXKR2009GB04260

PATIENT

DRUGS (4)
  1. ACETYLSALICYLIC ACID SRT [Suspect]
  2. DIPYRIDAMOLE [Suspect]
  3. ENOXAPARIN (NGX) (ENOXAPARIN) UNKNOWN [Suspect]
  4. DALTEPARIN SODIUM [Suspect]

REACTIONS (1)
  - GASTROINTESTINAL HAEMORRHAGE [None]
